FAERS Safety Report 16773581 (Version 1)
Quarter: 2019Q3

REPORT INFORMATION
  Report Type: Spontaneous
  Country: US (occurrence: US)
  Receive Date: 20190904
  Receipt Date: 20190904
  Transmission Date: 20191005
  Serious: Yes (Other)
  Sender: FDA-Public Use
  Company Number: US-LUNDBECK-DKLU3003436

PATIENT
  Sex: Male
  Weight: 17 kg

DRUGS (1)
  1. SABRIL [Suspect]
     Active Substance: VIGABATRIN
     Indication: INFANTILE SPASMS
     Route: 048

REACTIONS (4)
  - Seizure [Unknown]
  - Underdose [Unknown]
  - Loss of consciousness [Unknown]
  - Vomiting [Unknown]
